FAERS Safety Report 4790879-6 (Version None)
Quarter: 2005Q3

REPORT INFORMATION
  Report Type: 
  Country: None (occurrence: None)
  Receive Date: 20050914
  Receipt Date: 20040823
  Transmission Date: 20060218
  Serious: Yes (Death, Hospitalization)
  Sender: FDA-Public Use
  Company Number: 163-20785-04080451

PATIENT
  Age: 58 Year
  Sex: Male

DRUGS (6)
  1. THALOMID [Suspect]
     Indication: MULTIPLE MYELOMA
     Dosage: 400 MG, DAILY, ORAL
     Route: 048
     Dates: start: 20031210
  2. THALOMID [Suspect]
     Indication: MULTIPLE MYELOMA
     Dosage: 400 MG, DAILY, ORAL
     Route: 048
     Dates: start: 20050105
  3. MORPHINE SULFATE [Suspect]
     Indication: PAIN
  4. STEROIDS (CORTICOSTEROID NOS) [Concomitant]
  5. VICODIN [Suspect]
     Indication: PAIN
  6. FENTANYL [Suspect]
     Indication: PAIN

REACTIONS (2)
  - CONFUSIONAL STATE [None]
  - DEATH [None]
